FAERS Safety Report 5362235-3 (Version None)
Quarter: 2007Q2

REPORT INFORMATION
  Report Type: 
  Country: None (occurrence: None)
  Receive Date: 20070619
  Receipt Date: 20070615
  Transmission Date: 20071010
  Serious: Yes (Hospitalization)
  Sender: FDA-Public Use
  Company Number: US-BRISTOL-MYERS SQUIBB COMPANY-13816277

PATIENT
  Sex: Male
  Weight: 63 kg

DRUGS (4)
  1. SPRYCEL [Suspect]
     Indication: CHRONIC MYELOID LEUKAEMIA
     Dosage: DECREASED TO 50 MG
     Route: 048
     Dates: start: 20060101
  2. TRICOR [Concomitant]
  3. IMODIUM [Concomitant]
  4. OPIUM TINCTURE [Concomitant]

REACTIONS (2)
  - ABDOMINAL ADHESIONS [None]
  - GASTROINTESTINAL OBSTRUCTION [None]
